FAERS Safety Report 12166969 (Version 1)
Quarter: 2016Q1

REPORT INFORMATION
  Report Type: Spontaneous
  Country: US (occurrence: US)
  Receive Date: 20160310
  Receipt Date: 20160310
  Transmission Date: 20160526
  Serious: Yes (Other)
  Sender: FDA-Public Use
  Company Number: US-ROCHE-1723197

PATIENT
  Age: 75 Year
  Sex: Female

DRUGS (9)
  1. PRADAXA [Concomitant]
     Active Substance: DABIGATRAN ETEXILATE MESYLATE
     Route: 065
  2. PROTONIX (UNITED STATES) [Concomitant]
  3. BABY ASPIRIN [Concomitant]
     Active Substance: ASPIRIN
  4. SYNTHROID [Concomitant]
     Active Substance: LEVOTHYROXINE SODIUM
     Route: 065
  5. DILAUDID [Concomitant]
     Active Substance: HYDROMORPHONE HYDROCHLORIDE
  6. LEXAPRO [Concomitant]
     Active Substance: ESCITALOPRAM OXALATE
     Indication: ANXIETY
  7. VALIUM [Suspect]
     Active Substance: DIAZEPAM
     Indication: ANXIETY
     Dosage: TAKING SINCE 20 YEARS
     Route: 065
  8. CARDIZEM [Concomitant]
     Active Substance: DILTIAZEM HYDROCHLORIDE
     Route: 065
  9. LIPITOR [Concomitant]
     Active Substance: ATORVASTATIN CALCIUM

REACTIONS (13)
  - Streptococcal infection [Unknown]
  - Anaemia [Unknown]
  - Uterine cancer [Recovered/Resolved]
  - Nephrolithiasis [Unknown]
  - Amnesia [Unknown]
  - Pneumonia aspiration [Unknown]
  - Staphylococcal infection [Unknown]
  - Sepsis [Unknown]
  - Pulseless electrical activity [Recovered/Resolved]
  - Atrial fibrillation [Unknown]
  - Lymphoma [Unknown]
  - Coma [Recovered/Resolved]
  - Cardiac arrest [Unknown]

NARRATIVE: CASE EVENT DATE: 201512
